FAERS Safety Report 9220725 (Version 2)
Quarter: 2013Q2

REPORT INFORMATION
  Report Type: Spontaneous
  Country: US (occurrence: US)
  Receive Date: 20130409
  Receipt Date: 20130604
  Transmission Date: 20140414
  Serious: Yes (Hospitalization)
  Sender: FDA-Public Use
  Company Number: US-009507513-1304USA003980

PATIENT
  Sex: Female
  Weight: 108.84 kg

DRUGS (10)
  1. MIRALAX [Suspect]
     Indication: CONSTIPATION
     Dosage: UNK, BID
     Route: 048
     Dates: start: 201304
  2. LISINOPRIL [Concomitant]
     Indication: HYPERTENSION
     Route: 048
  3. SIMVASTATIN [Concomitant]
     Indication: BLOOD CHOLESTEROL INCREASED
  4. KLOR-CON [Concomitant]
     Indication: BLOOD POTASSIUM DECREASED
  5. FURMETHIDE [Concomitant]
     Indication: DIURETIC THERAPY
  6. LEVOTHYROXINE SODIUM [Concomitant]
     Indication: THYROID DISORDER
  7. MECLIZINE [Concomitant]
     Indication: DIZZINESS
  8. OXYCODONE [Concomitant]
     Indication: PAIN
  9. LORAZEPAM [Concomitant]
     Indication: HYPERTENSION
  10. LORAZEPAM [Concomitant]
     Indication: NERVOUSNESS

REACTIONS (5)
  - Abnormal faeces [Unknown]
  - Haematochezia [Unknown]
  - Flatulence [Unknown]
  - Incorrect drug administration duration [Unknown]
  - Inappropriate schedule of drug administration [Unknown]
